FAERS Safety Report 6399303-3 (Version None)
Quarter: 2009Q4

REPORT INFORMATION
  Report Type: 
  Country: None (occurrence: None)
  Receive Date: 20091014
  Receipt Date: 20070606
  Transmission Date: 20100525
  Serious: Yes (Hospitalization, Other)
  Sender: FDA-Public Use
  Company Number: US-ASTRAZENECA-2006UW23233

PATIENT
  Age: 52 Year
  Sex: Male
  Weight: 98.4 kg

DRUGS (7)
  1. SEROQUEL [Suspect]
     Indication: DEPRESSION
     Dosage: 25-100 MG
     Route: 048
     Dates: start: 20020613
  2. SEROQUEL [Suspect]
     Indication: SLEEP DISORDER
     Dosage: 25-100 MG
     Route: 048
     Dates: start: 20020613
  3. SEROQUEL [Suspect]
     Dosage: 100 MG, 50 MG
     Route: 048
     Dates: start: 20020101
  4. SEROQUEL [Suspect]
     Dosage: 100 MG, 50 MG
     Route: 048
     Dates: start: 20020101
  5. WELLBUTRIN [Concomitant]
     Dosage: 150-300 MG
     Dates: start: 20050927
  6. NEURONTIN [Concomitant]
     Dosage: 300-900 MG
     Dates: start: 20050807
  7. PREDNISONE [Concomitant]
     Dates: start: 20010622

REACTIONS (13)
  - DIABETES MELLITUS [None]
  - DIABETES MELLITUS INADEQUATE CONTROL [None]
  - DIABETIC KETOACIDOSIS [None]
  - HYPERGLYCAEMIA [None]
  - HYPERGLYCAEMIC HYPEROSMOLAR NONKETOTIC SYNDROME [None]
  - KETOSIS [None]
  - MULTIPLE INJURIES [None]
  - NEUROLEPTIC MALIGNANT SYNDROME [None]
  - NEUROPATHY PERIPHERAL [None]
  - PANCREATITIS [None]
  - PANCREATITIS CHRONIC [None]
  - POLYNEUROPATHY [None]
  - TYPE 2 DIABETES MELLITUS [None]
